FAERS Safety Report 7676830-X (Version None)
Quarter: 2011Q3

REPORT INFORMATION
  Report Type: 
  Country: None (occurrence: None)
  Receive Date: 20110811
  Receipt Date: 20110801
  Transmission Date: 20111222
  Serious: Yes (Death, Other)
  Sender: FDA-Public Use
  Company Number: DE-TEVA-292087GER

PATIENT
  Sex: Male

DRUGS (3)
  1. VINORELBINE [Suspect]
     Dosage: 20 MG/M2; MOST RECENT ADMINISTRATION ON 01-DEC-2005
     Route: 042
     Dates: start: 20051124
  2. PACLITAXEL [Suspect]
     Dosage: 175 MG/M2; MOST RECENT ADMINISTRATION ON 19-OCT-2005
     Route: 042
     Dates: start: 20050907
  3. CISPLATIN [Suspect]
     Dosage: 50 MG/M2; MOST RECENT ADMINISTRATION ON 01-DEC-2005
     Route: 042
     Dates: start: 20050907

REACTIONS (5)
  - HYPONATRAEMIA [None]
  - PSYCHOTIC DISORDER DUE TO A GENERAL MEDICAL CONDITION [None]
  - DEMYELINATION [None]
  - CARDIAC FAILURE [None]
  - INFECTIOUS PLEURAL EFFUSION [None]
